FAERS Safety Report 4438860-0 (Version None)
Quarter: 2004Q3

REPORT INFORMATION
  Report Type: 
  Country: None (occurrence: None)
  Receive Date: 20040901
  Receipt Date: 20040826
  Transmission Date: 20050211
  Serious: Yes (Death, Hospitalization)
  Sender: FDA-Public Use
  Company Number: 200416481US

PATIENT
  Sex: 0

DRUGS (2)
  1. LOVENOX [Suspect]
     Indication: SURGERY
     Dosage: DOSE: UNK
     Dates: start: 20040501, end: 20040501
  2. COUMADIN [Concomitant]

REACTIONS (3)
  - DIALYSIS [None]
  - HYDRONEPHROSIS [None]
  - RETROPERITONEAL HAEMATOMA [None]
